FAERS Safety Report 16682441 (Version 3)
Quarter: 2019Q4

REPORT INFORMATION
  Report Type: Spontaneous
  Country: US (occurrence: US)
  Receive Date: 20190808
  Receipt Date: 20191018
  Transmission Date: 20200122
  Serious: Yes (Hospitalization)
  Sender: FDA-Public Use
  Company Number: US-PFIZER INC-2019338963

PATIENT
  Age: 86 Year
  Sex: Male
  Weight: 67.12 kg

DRUGS (3)
  1. DOFETILIDE. [Suspect]
     Active Substance: DOFETILIDE
     Indication: ATRIAL FIBRILLATION
     Dosage: 0.125 MG, 2X/DAY
     Route: 048
     Dates: start: 20190709
  2. DOFETILIDE. [Suspect]
     Active Substance: DOFETILIDE
     Dosage: 0.125 MG, 2X/DAY
     Route: 048
     Dates: start: 201908
  3. ELIQUIS [Concomitant]
     Active Substance: APIXABAN
     Dosage: 5 UG, UNK
     Dates: start: 201902

REACTIONS (5)
  - Headache [Not Recovered/Not Resolved]
  - Chest discomfort [Unknown]
  - Dizziness [Not Recovered/Not Resolved]
  - Palpitations [Not Recovered/Not Resolved]
  - Vertigo [Unknown]

NARRATIVE: CASE EVENT DATE: 2019
